FAERS Safety Report 11276533 (Version 1)
Quarter: 2015Q3

REPORT INFORMATION
  Report Type: Spontaneous
  Country: US (occurrence: US)
  Receive Date: 20150716
  Receipt Date: 20150716
  Transmission Date: 20151125
  Serious: Yes (Other)
  Sender: FDA-Public Use
  Company Number: US-SANOFI-AVENTIS-2012SA064164

PATIENT
  Sex: Female

DRUGS (3)
  1. COUMADIN [Concomitant]
     Active Substance: WARFARIN SODIUM
     Indication: CORONARY ARTERY BYPASS
     Dates: start: 200102, end: 200106
  2. PLAVIX [Suspect]
     Active Substance: CLOPIDOGREL BISULFATE
     Indication: STENT PLACEMENT
     Route: 048
     Dates: start: 20080607, end: 20080915
  3. ASPIRIN. [Concomitant]
     Active Substance: ASPIRIN
     Dates: start: 200010

REACTIONS (6)
  - Movement disorder [Unknown]
  - Renal failure [Unknown]
  - Hepatic failure [Unknown]
  - Paraesthesia [Unknown]
  - Thrombotic thrombocytopenic purpura [Recovered/Resolved]
  - Thrombosis [Unknown]

NARRATIVE: CASE EVENT DATE: 20080919
